FAERS Safety Report 19084777 (Version 1)
Quarter: 2021Q2

REPORT INFORMATION
  Report Type: Report from Study
  Country: SI (occurrence: SI)
  Receive Date: 20210401
  Receipt Date: 20210401
  Transmission Date: 20210717
  Serious: Yes (Hospitalization)
  Sender: FDA-Public Use
  Company Number: SI-TAKEDA-SI202013795

PATIENT
  Age: 18 Year
  Sex: Male
  Weight: 70 kg

DRUGS (13)
  1. ADVATE [Suspect]
     Active Substance: ANTIHEMOPHILIC FACTOR, HUMAN RECOMBINANT
     Dosage: 4500 INTERNATIONAL UNIT, FREQUENCY TWICE
     Route: 042
     Dates: start: 20200412, end: 20200413
  2. PANTOPRAZOL [PANTOPRAZOLE] [Concomitant]
     Active Substance: PANTOPRAZOLE
     Indication: ANALGESIC THERAPY
     Route: 065
  3. ADVATE [Suspect]
     Active Substance: ANTIHEMOPHILIC FACTOR, HUMAN RECOMBINANT
     Indication: FACTOR VIII DEFICIENCY
     Dosage: 1000 INTERNATIONAL UNIT (DURATION FEW MINUTES), APPLIED ON HAND
     Route: 042
     Dates: start: 20200412
  4. ADVATE [Suspect]
     Active Substance: ANTIHEMOPHILIC FACTOR, HUMAN RECOMBINANT
     Indication: FACTOR VIII DEFICIENCY
     Dosage: 1000 INTERNATIONAL UNIT (DURATION FEW MINUTES), APPLIED ON HAND
     Route: 042
     Dates: start: 20200412
  5. ADVATE [Suspect]
     Active Substance: ANTIHEMOPHILIC FACTOR, HUMAN RECOMBINANT
     Indication: PROPHYLAXIS
     Dosage: 4500 INTERNATIONAL UNIT, FREQUENCY TWICE
     Route: 042
     Dates: start: 20200412, end: 20200413
  6. ADVATE [Suspect]
     Active Substance: ANTIHEMOPHILIC FACTOR, HUMAN RECOMBINANT
     Indication: FACTOR VIII DEFICIENCY
     Dosage: 1000 INTERNATIONAL UNIT (DURATION FEW MINUTES), APPLIED ON HAND
     Route: 042
     Dates: start: 20200412
  7. ADVATE [Suspect]
     Active Substance: ANTIHEMOPHILIC FACTOR, HUMAN RECOMBINANT
     Indication: PROPHYLAXIS
     Dosage: 4500 INTERNATIONAL UNIT, FREQUENCY TWICE
     Route: 042
     Dates: start: 20200412, end: 20200413
  8. ADVATE [Suspect]
     Active Substance: ANTIHEMOPHILIC FACTOR, HUMAN RECOMBINANT
     Dosage: 4500 INTERNATIONAL UNIT, FREQUENCY TWICE
     Route: 042
     Dates: start: 20200412, end: 20200413
  9. ADVATE [Suspect]
     Active Substance: ANTIHEMOPHILIC FACTOR, HUMAN RECOMBINANT
     Dosage: 4500 INTERNATIONAL UNIT, FREQUENCY TWICE
     Route: 042
     Dates: start: 20200412, end: 20200413
  10. ADVATE [Suspect]
     Active Substance: ANTIHEMOPHILIC FACTOR, HUMAN RECOMBINANT
     Indication: PROPHYLAXIS
     Dosage: 4500 INTERNATIONAL UNIT, FREQUENCY TWICE
     Route: 042
     Dates: start: 20200412, end: 20200413
  11. ADVATE [Suspect]
     Active Substance: ANTIHEMOPHILIC FACTOR, HUMAN RECOMBINANT
     Dosage: 4500 INTERNATIONAL UNIT, FREQUENCY TWICE
     Route: 042
     Dates: start: 20200412, end: 20200413
  12. ADVATE [Suspect]
     Active Substance: ANTIHEMOPHILIC FACTOR, HUMAN RECOMBINANT
     Dosage: 4500 INTERNATIONAL UNIT, FREQUENCY TWICE
     Route: 042
     Dates: start: 20200412, end: 20200413
  13. ADVATE [Suspect]
     Active Substance: ANTIHEMOPHILIC FACTOR, HUMAN RECOMBINANT
     Dosage: 4500 INTERNATIONAL UNIT, FREQUENCY TWICE
     Route: 042
     Dates: start: 20200412, end: 20200413

REACTIONS (1)
  - Head injury [Recovered/Resolved]

NARRATIVE: CASE EVENT DATE: 20200412
